FAERS Safety Report 21330606 (Version 1)
Quarter: 2022Q3

REPORT INFORMATION
  Report Type: Spontaneous
  Country: US (occurrence: None)
  Receive Date: 20220913
  Receipt Date: 20220913
  Transmission Date: 20221027
  Serious: No
  Sender: FDA-Public Use
  Company Number: None

PATIENT
  Age: 80 Year
  Sex: Male

DRUGS (1)
  1. COSENTYX [Suspect]
     Active Substance: SECUKINUMAB
     Indication: Psoriasis
     Dosage: OTHER FREQUENCY : OTHER;?
     Route: 058
     Dates: start: 2018

REACTIONS (3)
  - Prostate cancer [None]
  - Therapeutic product effect decreased [None]
  - Condition aggravated [None]

NARRATIVE: CASE EVENT DATE: 20220809
